FAERS Safety Report 8133688-2 (Version None)
Quarter: 2012Q1

REPORT INFORMATION
  Report Type: 
  Country: None (occurrence: None)
  Receive Date: 20120213
  Receipt Date: 20120208
  Transmission Date: 20120608
  Serious: Yes (Other)
  Sender: FDA-Public Use
  Company Number: PHEH2008US06597

PATIENT
  Sex: Female

DRUGS (36)
  1. CITALOPRAM HYDROBROMIDE [Concomitant]
     Dosage: 20 MG, UNK
  2. MEGESTROL ACETATE [Concomitant]
     Dosage: 40 MG, UNK
  3. EFFEXOR XR [Concomitant]
     Dosage: 37.5 MG, UNK
  4. ZOMETA [Suspect]
     Indication: OSTEOPOROSIS PROPHYLAXIS
     Dates: start: 20060101, end: 20060801
  5. CYCLOBENZAPRINE [Concomitant]
     Dosage: 10 MG, UNK
  6. IBUPROFEN [Concomitant]
     Dosage: 800 MG, UNK
  7. AVELOX [Concomitant]
  8. NEURONTIN [Concomitant]
  9. AMBIEN [Concomitant]
     Dosage: 5 MG, UNK
  10. PHENERGAN [Concomitant]
     Dosage: 25 MG, UNK
  11. CHLORHEXIDINE GLUCONATE [Concomitant]
     Dosage: 0.12 %, UNK
  12. OXYCONTIN [Concomitant]
  13. HYDROCODONE BITARTRATE AND ACETAMINOPHEN [Concomitant]
     Dosage: 7.5-750MG
  14. AMOXICILLIN [Concomitant]
     Dosage: 500 MG, UNK
  15. LORAZEPAM [Concomitant]
     Dosage: 1 MG, UNK
  16. VICODIN [Concomitant]
  17. ACETAMINOPHEN [Concomitant]
  18. FOSAMAX [Suspect]
     Dosage: UNK
     Dates: start: 20031201, end: 20050901
  19. OXYCODONE HCL [Concomitant]
     Dosage: 40 MG, UNK
  20. HYDROCODONE BITARTRATE AND ACETAMINOPHEN [Concomitant]
     Dosage: 5-500MG
  21. LORAZEPAM [Concomitant]
     Dosage: 0.5 MG, UNK
  22. NAPROXEN SODIUM [Concomitant]
     Dosage: 550 MG, UNK
  23. TAMOXIFEN CITRATE [Concomitant]
     Dosage: 10 MG, UNK
  24. CEPHALEXIN [Concomitant]
     Dosage: 500 MG, UNK
  25. OCUFLOX [Concomitant]
     Dosage: 0.3 %, UNK
  26. METHYLPREDNISOLONE [Concomitant]
     Dosage: 4 MG, UNK
  27. PENICILLIN VK [Concomitant]
     Dosage: 500 MG, UNK
  28. OXYCODONE HCL [Concomitant]
     Dosage: 20 MG, UNK
  29. NAPROXEN [Concomitant]
     Dosage: 500 MG, UNK
  30. LEVAQUIN [Concomitant]
     Dosage: 500 MG, UNK
  31. ATIVAN [Concomitant]
  32. HERCEPTIN [Concomitant]
  33. OXYCODONE HCL [Concomitant]
     Dosage: 10 MG, UNK
  34. DIAZEPAM [Concomitant]
     Dosage: 5 MG, UNK
  35. IBUPROFEN (ADVIL) [Concomitant]
  36. OXYCODONE AND ACETAMINOPHEN [Concomitant]
     Dosage: 5-325MG

REACTIONS (36)
  - ATELECTASIS [None]
  - VERTEBRAL FORAMINAL STENOSIS [None]
  - RADIATION FIBROSIS - LUNG [None]
  - PAIN [None]
  - EDENTULOUS [None]
  - PARAESTHESIA ORAL [None]
  - PAIN IN JAW [None]
  - RADICULAR PAIN [None]
  - MUSCULAR WEAKNESS [None]
  - PAIN IN EXTREMITY [None]
  - OSTEOARTHRITIS [None]
  - OSTEOLYSIS [None]
  - METASTASES TO LYMPH NODES [None]
  - INTERVERTEBRAL DISC PROTRUSION [None]
  - ARTHROPATHY [None]
  - OSTEONECROSIS OF JAW [None]
  - NASOPHARYNGITIS [None]
  - PARAESTHESIA [None]
  - ANXIETY [None]
  - DECREASED INTEREST [None]
  - SPONDYLOLYSIS [None]
  - PELVIC PAIN [None]
  - METASTASES TO PELVIS [None]
  - INJURY [None]
  - SINUSITIS [None]
  - METASTASES TO SPINE [None]
  - FORAMEN MAGNUM STENOSIS [None]
  - METASTASES TO BONE [None]
  - METASTASES TO SKIN [None]
  - FEMUR FRACTURE [None]
  - METASTASES TO CENTRAL NERVOUS SYSTEM [None]
  - DRUG ABUSE [None]
  - DIARRHOEA [None]
  - BACK PAIN [None]
  - NECK PAIN [None]
  - CARPAL TUNNEL SYNDROME [None]
